FAERS Safety Report 21236270 (Version 2)
Quarter: 2022Q4

REPORT INFORMATION
  Report Type: Spontaneous
  Country: US (occurrence: US)
  Receive Date: 20220822
  Receipt Date: 20221021
  Transmission Date: 20230113
  Serious: Yes (Other)
  Sender: FDA-Public Use
  Company Number: US-CELGENE-USA-20170404788

PATIENT
  Sex: Female

DRUGS (3)
  1. THALOMID [Suspect]
     Active Substance: THALIDOMIDE
     Indication: Product used for unknown indication
     Dosage: 300 MILLIGRAM
     Route: 050
     Dates: start: 201008
  2. THALOMID [Suspect]
     Active Substance: THALIDOMIDE
     Dosage: 50-200MG
     Route: 050
     Dates: start: 201012
  3. THALOMID [Suspect]
     Active Substance: THALIDOMIDE
     Dosage: 200 MILLIGRAM
     Route: 050
     Dates: start: 201611

REACTIONS (3)
  - Exposure via body fluid [Unknown]
  - Treatment noncompliance [Unknown]
  - Live birth [Unknown]
